FAERS Safety Report 7997018-9 (Version None)
Quarter: 2011Q4

REPORT INFORMATION
  Report Type: 
  Country: None (occurrence: None)
  Receive Date: 20111221
  Receipt Date: 20111212
  Transmission Date: 20120403
  Serious: Yes (Other)
  Sender: FDA-Public Use
  Company Number: US-JNJFOC-20111107759

PATIENT
  Sex: Male
  Weight: 90.72 kg

DRUGS (2)
  1. REMICADE [Suspect]
     Indication: COLITIS ULCERATIVE
     Route: 042
     Dates: start: 20110701, end: 20111019
  2. REMICADE [Suspect]
     Route: 042
     Dates: start: 20110527, end: 20110701

REACTIONS (7)
  - DISORIENTATION [None]
  - PRURITUS GENERALISED [None]
  - DIZZINESS [None]
  - BLOOD PRESSURE DECREASED [None]
  - INFUSION RELATED REACTION [None]
  - FLUSHING [None]
  - DRUG INEFFECTIVE [None]
